FAERS Safety Report 8122168-6 (Version None)
Quarter: 2011Q4

REPORT INFORMATION
  Report Type: 
  Country: None (occurrence: None)
  Receive Date: 20111227
  Receipt Date: 20110928
  Transmission Date: 20120403
  Serious: No
  Sender: FDA-Public Use
  Company Number: PHHY2011US45853

PATIENT
  Age: 20 Year
  Sex: Male

DRUGS (1)
  1. GILENYA [Suspect]
     Indication: MULTIPLE SCLEROSIS
     Dosage: 0.5 MG, DAILY, ORAL
     Route: 048
     Dates: start: 20110414

REACTIONS (8)
  - PHOTOPHOBIA [None]
  - PAIN [None]
  - CHEST PAIN [None]
  - FATIGUE [None]
  - DRUG INEFFECTIVE [None]
  - DIARRHOEA [None]
  - DIZZINESS [None]
  - CHILLS [None]
